FAERS Safety Report 24919827 (Version 1)
Quarter: 2025Q1

REPORT INFORMATION
  Report Type: Spontaneous
  Country: US (occurrence: US)
  Receive Date: 20250204
  Receipt Date: 20250204
  Transmission Date: 20250408
  Serious: No
  Sender: TARO
  Company Number: US-TARO PHARMACEUTICALS USA INC.-2024TAR02430

PATIENT
  Age: 19 Year
  Sex: Female

DRUGS (1)
  1. ADAPALENE [Suspect]
     Active Substance: ADAPALENE
     Indication: Product used for unknown indication
     Route: 061

REACTIONS (3)
  - Rash [Unknown]
  - Inflammation [Unknown]
  - Erythema [Unknown]
